FAERS Safety Report 10189864 (Version 1)
Quarter: 2014Q2

REPORT INFORMATION
  Report Type: Spontaneous
  Country: TR (occurrence: TR)
  Receive Date: 20140522
  Receipt Date: 20140522
  Transmission Date: 20141212
  Serious: Yes (Hospitalization, Other)
  Sender: FDA-Public Use
  Company Number: TR-WATSON-2014-10167

PATIENT
  Age: 58 Year
  Sex: Male

DRUGS (5)
  1. PREGABALIN (UNKNOWN) [Suspect]
     Indication: SMALL FIBRE NEUROPATHY
     Dosage: 75 MG, SINGLE
     Route: 065
  2. PREGABALIN (UNKNOWN) [Suspect]
     Indication: PAIN MANAGEMENT
  3. CLOPIDOGREL [Concomitant]
     Indication: CORONARY ARTERY DISEASE
     Dosage: 75 MG, DAILY
     Route: 065
  4. METFORMIN [Concomitant]
     Indication: DIABETES MELLITUS
     Dosage: 1000 MG, DAILY
     Route: 065
  5. METOPROLOL SUCCINATE [Concomitant]
     Indication: HYPERTENSION
     Dosage: 50 MG, DAILY
     Route: 065

REACTIONS (1)
  - Akathisia [Recovered/Resolved]
